FAERS Safety Report 5673676-9 (Version None)
Quarter: 2008Q2

REPORT INFORMATION
  Report Type: 
  Country: None (occurrence: None)
  Receive Date: 20080225
  Receipt Date: 20070427
  Transmission Date: 20081010
  Serious: Yes (Other)
  Sender: FDA-Public Use
  Company Number: WAES 0705USA01118

PATIENT
  Age: 72 Year
  Sex: Male
  Weight: 76.6579 kg

DRUGS (1)
  1. ZOCOR [Suspect]
     Indication: HYPERLIPIDAEMIA
     Dosage: PO
     Route: 048
     Dates: start: 20000428

REACTIONS (1)
  - RHABDOMYOLYSIS [None]
